FAERS Safety Report 5942000-6 (Version None)
Quarter: 2008Q4

REPORT INFORMATION
  Report Type: 
  Country: None (occurrence: None)
  Receive Date: 20081105
  Receipt Date: 20081103
  Transmission Date: 20090506
  Serious: Yes (Disabling)
  Sender: FDA-Public Use
  Company Number: GB-ASTRAZENECA-2008GB01623

PATIENT
  Age: 509 Month
  Sex: Female

DRUGS (1)
  1. ZOLADEX [Suspect]
     Route: 058
     Dates: start: 20080101

REACTIONS (1)
  - MUSCULAR WEAKNESS [None]
